FAERS Safety Report 18799214 (Version 1)
Quarter: 2021Q1

REPORT INFORMATION
  Report Type: Spontaneous
  Country: US (occurrence: US)
  Receive Date: 20210128
  Receipt Date: 20210128
  Transmission Date: 20210419
  Serious: Yes (Hospitalization, Other)
  Sender: FDA-Public Use
  Company Number: US-HIKMA PHARMACEUTICALS USA INC.-US-H14001-21-53488

PATIENT
  Age: 53 Year
  Sex: Male

DRUGS (1)
  1. CISPLATIN. [Suspect]
     Active Substance: CISPLATIN
     Indication: TONSIL CANCER
     Dosage: UNKNOWN
     Route: 065

REACTIONS (3)
  - Appendicitis [Recovering/Resolving]
  - Clostridium difficile colitis [Recovering/Resolving]
  - Colitis [Recovering/Resolving]
